FAERS Safety Report 5287589-8 (Version None)
Quarter: 2007Q1

REPORT INFORMATION
  Report Type: 
  Country: None (occurrence: None)
  Receive Date: 20070126
  Receipt Date: 20060117
  Transmission Date: 20070707
  Serious: No
  Sender: FDA-Public Use
  Company Number: 2006CT001116

PATIENT
  Age: 61 Year
  Sex: Male
  Weight: 93 kg

DRUGS (14)
  1. VENTAVIS [Suspect]
     Indication: PULMONARY HYPERTENSION
     Dosage: SEE IMAGE
     Route: 055
     Dates: start: 20051103, end: 20051121
  2. VENTAVIS [Suspect]
     Indication: PULMONARY HYPERTENSION
     Dosage: SEE IMAGE
     Route: 055
     Dates: start: 20051201, end: 20060117
  3. BUMEX [Concomitant]
  4. GLUCOTROL [Concomitant]
  5. GLUCOPHAGE [Concomitant]
  6. COLCHINE [Concomitant]
  7. TOPROL-XL [Concomitant]
  8. DIGOXIN [Concomitant]
  9. PENTOXIFYLLINE [Concomitant]
  10. ASPIRIN [Concomitant]
  11. IRON [Concomitant]
  12. SYNTHROID [Concomitant]
  13. AVANDIA [Concomitant]
  14. ALDACTONE [Concomitant]

REACTIONS (3)
  - OEDEMA [None]
  - PAIN IN EXTREMITY [None]
  - VASODILATATION [None]
